FAERS Safety Report 5509454-0 (Version None)
Quarter: 2007Q4

REPORT INFORMATION
  Report Type: 
  Country: None (occurrence: None)
  Receive Date: 20071106
  Receipt Date: 20071101
  Transmission Date: 20080405
  Serious: Yes (Life-Threatening, Hospitalization)
  Sender: FDA-Public Use
  Company Number: 2007SP003708

PATIENT
  Sex: 0

DRUGS (1)
  1. LUNESTA [Suspect]
     Dosage: 96 MG; 1X; ORAL
     Route: 048

REACTIONS (2)
  - OVERDOSE [None]
  - RESPIRATORY DEPRESSION [None]
